FAERS Safety Report 5646966-3 (Version None)
Quarter: 2008Q1

REPORT INFORMATION
  Report Type: 
  Country: None (occurrence: None)
  Receive Date: 20080303
  Receipt Date: 20080225
  Transmission Date: 20080703
  Serious: Yes (Death)
  Sender: FDA-Public Use
  Company Number: A0712993A

PATIENT
  Age: 78 Year
  Sex: Male

DRUGS (1)
  1. SERETIDE [Suspect]
     Route: 055
     Dates: start: 20071225, end: 20080223

REACTIONS (2)
  - DEATH [None]
  - DRUG ADMINISTRATION ERROR [None]
